FAERS Safety Report 9207956 (Version 2)
Quarter: 2013Q2

REPORT INFORMATION
  Report Type: Spontaneous
  Country: CL (occurrence: CL)
  Receive Date: 20130403
  Receipt Date: 20130417
  Transmission Date: 20140414
  Serious: Yes (Other)
  Sender: FDA-Public Use
  Company Number: CL-AMGEN-CHLSP2013022829

PATIENT
  Sex: Female

DRUGS (1)
  1. PROLIA [Suspect]
     Indication: OSTEOPOROSIS POSTMENOPAUSAL
     Dosage: 60 MG, UNK
     Route: 048
     Dates: start: 20120904

REACTIONS (7)
  - Influenza like illness [Not Recovered/Not Resolved]
  - Pyrexia [Not Recovered/Not Resolved]
  - Oropharyngeal pain [Not Recovered/Not Resolved]
  - Infectious mononucleosis [Recovered/Resolved]
  - Aphthous stomatitis [Not Recovered/Not Resolved]
  - Night sweats [Unknown]
  - Asthenia [Not Recovered/Not Resolved]
